FAERS Safety Report 7104013-0 (Version None)
Quarter: 2010Q4

REPORT INFORMATION
  Report Type: 
  Country: None (occurrence: None)
  Receive Date: 20101115
  Receipt Date: 20100512
  Transmission Date: 20110411
  Serious: No
  Sender: FDA-Public Use
  Company Number: US-ALLERGAN-1006245US

PATIENT
  Age: 43 Year
  Sex: Female

DRUGS (1)
  1. BOTOXA? [Suspect]
     Indication: FACIAL SPASM
     Dosage: 60 UNITS, SINGLE
     Dates: start: 20100505, end: 20100505

REACTIONS (1)
  - EYELID PTOSIS [None]
